FAERS Safety Report 11046849 (Version 1)
Quarter: 2015Q2

REPORT INFORMATION
  Report Type: Spontaneous
  Country: GB (occurrence: GB)
  Receive Date: 20150420
  Receipt Date: 20150420
  Transmission Date: 20150821
  Serious: Yes (Other)
  Sender: FDA-Public Use
  Company Number: GB-TEVA-555017ACC

PATIENT
  Age: 38 Year
  Sex: Male
  Weight: 89 kg

DRUGS (1)
  1. TOPIRAMATE. [Suspect]
     Active Substance: TOPIRAMATE
     Indication: EPILEPSY
     Dosage: 150 MILLIGRAM DAILY;
     Dates: start: 20131209

REACTIONS (2)
  - Sleep disorder [Unknown]
  - Micturition urgency [Not Recovered/Not Resolved]
